FAERS Safety Report 6097766-4 (Version None)
Quarter: 2009Q1

REPORT INFORMATION
  Report Type: 
  Country: None (occurrence: None)
  Receive Date: 20090223
  Receipt Date: 20080305
  Transmission Date: 20090719
  Serious: Yes (Disabling)
  Sender: FDA-Public Use
  Company Number: WAES 0711USA03653

PATIENT
  Age: 55 Year
  Sex: Female
  Weight: 94.3482 kg

DRUGS (1)
  1. ZOCOR [Suspect]
     Indication: HYPERLIPIDAEMIA
     Dosage: 40 MG/DAILY/PO
     Route: 048
     Dates: start: 20070508, end: 20071004

REACTIONS (1)
  - ALOPECIA [None]
